FAERS Safety Report 22232406 (Version 1)
Quarter: 2023Q2

REPORT INFORMATION
  Report Type: Spontaneous
  Country: US (occurrence: None)
  Receive Date: 20230420
  Receipt Date: 20230420
  Transmission Date: 20230721
  Serious: No
  Sender: FDA-Public Use
  Company Number: US-ROCHE-3096262

PATIENT
  Sex: Male

DRUGS (2)
  1. ESBRIET [Suspect]
     Active Substance: PIRFENIDONE
     Indication: Pulmonary fibrosis
     Dosage: TAKE 1 TABLET 3 TIMES A DAY FOR 7 DAYS, THEN TAKE 2 TABLETS 3 TIMES A DAY FOR 7 DAYS, THEN TAKE 3 TA
     Route: 048
     Dates: start: 20220413
  2. ESBRIET [Suspect]
     Active Substance: PIRFENIDONE
     Route: 048
     Dates: start: 20220510, end: 20220602

REACTIONS (2)
  - Dizziness [Unknown]
  - Nausea [Unknown]
